FAERS Safety Report 4325243-7 (Version None)
Quarter: 2004Q1

REPORT INFORMATION
  Report Type: 
  Country: None (occurrence: None)
  Receive Date: 20040324
  Receipt Date: 20040312
  Transmission Date: 20041129
  Serious: Yes (Hospitalization)
  Sender: FDA-Public Use
  Company Number: 2004203767ES

PATIENT
  Age: 58 Year
  Sex: Male

DRUGS (9)
  1. XALATAN [Suspect]
     Indication: GLAUCOMA
     Dosage: 1 GTT, QD, OPHTHALMIC
     Route: 047
     Dates: start: 20040101, end: 20040201
  2. ADRENERGICS, INHALANTS [Concomitant]
  3. PANTECTA (PANTOPRAZOLE SODIUM) [Concomitant]
  4. ADIRO [Concomitant]
  5. CLOPIDOGREL (CLOPIDOGREL) [Concomitant]
  6. UNIKET [Concomitant]
  7. AUGMENTIN [Concomitant]
  8. CAPTOPRIL [Concomitant]
  9. VERNIES [Concomitant]

REACTIONS (6)
  - CARDIOPULMONARY FAILURE [None]
  - CONDUCTION DISORDER [None]
  - PRINZMETAL ANGINA [None]
  - RESPIRATORY ARREST [None]
  - VENTRICULAR FIBRILLATION [None]
  - VENTRICULAR TACHYCARDIA [None]
